FAERS Safety Report 17256334 (Version 1)
Quarter: 2020Q1

REPORT INFORMATION
  Report Type: Spontaneous
  Country: GB (occurrence: GB)
  Receive Date: 20200110
  Receipt Date: 20200110
  Transmission Date: 20200409
  Serious: Yes (Other)
  Sender: FDA-Public Use
  Company Number: GB-TEVA-2020-GB-1165670

PATIENT
  Age: 34 Year
  Sex: Female
  Weight: 78.92 kg

DRUGS (2)
  1. DOXYCYCLINE HYCLATE. [Suspect]
     Active Substance: DOXYCYCLINE HYCLATE
     Indication: KIDNEY INFECTION
     Dosage: 200 MILLIGRAM
     Route: 048
     Dates: start: 20191123, end: 20191208
  2. PROZAC [Concomitant]
     Active Substance: FLUOXETINE HYDROCHLORIDE

REACTIONS (3)
  - Panic attack [Recovering/Resolving]
  - Anxiety [Recovering/Resolving]
  - Depressed mood [Recovering/Resolving]

NARRATIVE: CASE EVENT DATE: 20191202
